FAERS Safety Report 4531704-8 (Version None)
Quarter: 2004Q4

REPORT INFORMATION
  Report Type: 
  Country: None (occurrence: None)
  Receive Date: 20041206
  Receipt Date: 20040922
  Transmission Date: 20050328
  Serious: No
  Sender: FDA-Public Use
  Company Number: USA040978990

PATIENT
  Age: 55 Year
  Sex: Female
  Weight: 58 kg

DRUGS (3)
  1. CYMBALTA [Suspect]
     Indication: HEADACHE
     Dosage: 40 MG IN THE MORNING
     Dates: start: 20040912
  2. LAXATIVE [Concomitant]
  3. BOTOX (BOTULINUM TOXIN TYPE A) [Concomitant]

REACTIONS (5)
  - CONSTIPATION [None]
  - DECREASED APPETITE [None]
  - DRY MOUTH [None]
  - FATIGUE [None]
  - OEDEMA PERIPHERAL [None]
